FAERS Safety Report 5924030-3 (Version None)
Quarter: 2008Q4

REPORT INFORMATION
  Report Type: 
  Country: None (occurrence: None)
  Receive Date: 20081020
  Receipt Date: 20081014
  Transmission Date: 20090506
  Serious: Yes (Death, Hospitalization, Other)
  Sender: FDA-Public Use
  Company Number: PHHY2008JP21826

PATIENT
  Sex: Male
  Weight: 66 kg

DRUGS (10)
  1. NEORAL [Suspect]
     Indication: CHRONIC INFLAMMATORY DEMYELINATING POLYRADICULONEUROPATHY
     Dosage: 100 MG, BID
     Route: 048
     Dates: start: 20040525, end: 20041007
  2. PREDNISOLONE [Concomitant]
     Indication: RHEUMATOID ARTHRITIS
     Dosage: 15 MG
     Route: 048
  3. PREDNISOLONE [Concomitant]
     Dosage: 45 MG, UNK
     Route: 048
     Dates: start: 20040101
  4. PREDNISOLONE [Concomitant]
     Dosage: 40 MG, QOD
     Route: 048
     Dates: start: 20040507
  5. PREDNISOLONE [Concomitant]
     Dosage: 10 MG
     Route: 048
     Dates: start: 20040528, end: 20041007
  6. PREDNISOLONE [Concomitant]
     Dosage: UNK
     Dates: start: 20020101
  7. PREDNISOLONE [Concomitant]
     Dosage: TAPER DOWNWARDS
  8. IMMUNE GLOBULIN INTRAVENOUS (HUMAN) [Concomitant]
     Indication: RHEUMATOID ARTHRITIS
     Dosage: 400 MG/KG
     Dates: start: 20040115, end: 20040521
  9. IMMUNE GLOBULIN INTRAVENOUS (HUMAN) [Concomitant]
     Indication: CHRONIC INFLAMMATORY DEMYELINATING POLYRADICULONEUROPATHY
  10. DIURETICS [Concomitant]
     Indication: ANURIA
     Dosage: UNK
     Dates: start: 20041006

REACTIONS (13)
  - ANURIA [None]
  - ARTHRALGIA [None]
  - DIARRHOEA [None]
  - DIFFUSE LARGE B-CELL LYMPHOMA [None]
  - DYSPNOEA [None]
  - HYPOTENSION [None]
  - JOINT SWELLING [None]
  - LYMPHADENOPATHY [None]
  - MUSCULOSKELETAL STIFFNESS [None]
  - PYREXIA [None]
  - RENAL FAILURE ACUTE [None]
  - RHEUMATOID ARTHRITIS [None]
  - SOMNOLENCE [None]
